FAERS Safety Report 16410937 (Version 1)
Quarter: 2019Q2

REPORT INFORMATION
  Report Type: Report from Study
  Country: GB (occurrence: GB)
  Receive Date: 20190610
  Receipt Date: 20190610
  Transmission Date: 20190711
  Serious: Yes (Other)
  Sender: FDA-Public Use
  Company Number: GB-JNJFOC-20190540299

PATIENT
  Age: 23 Year
  Sex: Male

DRUGS (1)
  1. TREMFYA [Suspect]
     Active Substance: GUSELKUMAB
     Indication: PSORIASIS
     Route: 058
     Dates: start: 20190224

REACTIONS (5)
  - Condition aggravated [Unknown]
  - Nasal obstruction [Unknown]
  - Malaise [Unknown]
  - Product dose omission [Unknown]
  - Throat irritation [Unknown]

NARRATIVE: CASE EVENT DATE: 20190525
